FAERS Safety Report 12271013 (Version 1)
Quarter: 2016Q2

REPORT INFORMATION
  Report Type: Spontaneous
  Country: US (occurrence: US)
  Receive Date: 20160415
  Receipt Date: 20160415
  Transmission Date: 20160815
  Serious: No
  Sender: FDA-Public Use
  Company Number: US-BEH-2015052692

PATIENT
  Age: 11 Year
  Sex: Female
  Weight: 40 kg

DRUGS (1)
  1. CORTIFFACT [Suspect]
     Active Substance: FACTOR XIII CONCENTRATE (HUMAN)
     Indication: HAEMORRHAGE
     Route: 042

REACTIONS (1)
  - Contusion [Recovering/Resolving]

NARRATIVE: CASE EVENT DATE: 20150705
